FAERS Safety Report 7361212-0 (Version None)
Quarter: 2011Q1

REPORT INFORMATION
  Report Type: 
  Country: None (occurrence: None)
  Receive Date: 20110318
  Receipt Date: 20110305
  Transmission Date: 20110831
  Serious: Yes (Other)
  Sender: FDA-Public Use
  Company Number: PHFR2011GB01426

PATIENT
  Sex: Female

DRUGS (3)
  1. CLOZARIL [Suspect]
     Dosage: 300 MG DAILY
  2. VALPROATE SODIUM [Concomitant]
     Dosage: 600 MG, UNK
  3. CLOZARIL [Suspect]
     Indication: SCHIZOPHRENIA
     Dosage: 150 MG MANE, 200 MG NOCTE
     Route: 048
     Dates: start: 20110111

REACTIONS (3)
  - MUSCLE TWITCHING [None]
  - PARTIAL SEIZURES [None]
  - LOWER RESPIRATORY TRACT INFECTION [None]
